FAERS Safety Report 15211022 (Version 1)
Quarter: 2018Q3

REPORT INFORMATION
  Report Type: Spontaneous
  Country: US (occurrence: US)
  Receive Date: 20180629
  Receipt Date: 20180629
  Transmission Date: 20181010
  Serious: Yes (Disabling)
  Sender: FDA-Public Use
  Company Number: None

PATIENT
  Age: 42 Year
  Sex: Female

DRUGS (1)
  1. DR. REDDY BUPROPRION XL 150. WHITE ROUND PILLS IMPRINTED WITH 144 [Suspect]
     Active Substance: BUPROPION
     Indication: DEPRESSION
     Dosage: ?          QUANTITY:1 TABLET(S);?
     Route: 048
     Dates: start: 20180601, end: 20180629

REACTIONS (13)
  - Hostility [None]
  - Depression [None]
  - Dizziness [None]
  - Aggression [None]
  - Irritability [None]
  - Pain [None]
  - Insomnia [None]
  - Disturbance in attention [None]
  - Product substitution issue [None]
  - Loss of personal independence in daily activities [None]
  - Hyperhidrosis [None]
  - Headache [None]
  - Pyrexia [None]

NARRATIVE: CASE EVENT DATE: 20180601
